FAERS Safety Report 6577038-1 (Version None)
Quarter: 2010Q1

REPORT INFORMATION
  Report Type: 
  Country: None (occurrence: None)
  Receive Date: 20100210
  Receipt Date: 20100201
  Transmission Date: 20100710
  Serious: Yes (Other)
  Sender: FDA-Public Use
  Company Number: JP-BRISTOL-MYERS SQUIBB COMPANY-14818553

PATIENT
  Age: 58 Year
  Sex: Male
  Weight: 54 kg

DRUGS (12)
  1. ABILIFY [Suspect]
     Indication: SCHIZOPHRENIA
     Dosage: 13DEC08-06FEB09:6MG(56D),07FEB-31JUL09(12MG)(175 DAYS);01AUG-30NOV09(122D):24MG,1-3DEC09:12MG (3D)
     Route: 048
     Dates: start: 20081213, end: 20091203
  2. TRIHEXYPHENIDYL HCL [Concomitant]
     Dosage: TABS
     Route: 048
     Dates: start: 19960401
  3. VEGETAMIN-B [Concomitant]
     Indication: SCHIZOPHRENIA
     Dosage: TABS
     Route: 065
     Dates: start: 20021004
  4. LUNAPRON [Concomitant]
     Indication: SCHIZOPHRENIA
     Route: 048
     Dates: start: 20041009
  5. NEULEPTIL [Concomitant]
     Indication: SCHIZOPHRENIA
     Dosage: 07FEB09-20SEP09(226DAYS)10MG;21SEP09(15MG)
     Route: 048
     Dates: start: 20041009, end: 20090206
  6. DILTIAZEM HCL [Concomitant]
     Dosage: 1 DF= 100 UNITS NOS
     Dates: start: 20080802
  7. SODIUM PICOSULFATE [Concomitant]
     Dates: start: 20081201
  8. MAGNESIUM OXIDE [Concomitant]
     Dates: start: 20070217
  9. NITRAZEPAM [Concomitant]
     Dates: start: 20090331
  10. VOGLIBOSE [Concomitant]
     Dosage: 1 DF= 1 TABS
     Route: 048
     Dates: start: 20080119
  11. DILTIAZEM HCL [Concomitant]
     Dosage: 1 DF= 100 (UNIT NOT SPECIFIED)
     Dates: start: 20080802
  12. AKINETON [Concomitant]
     Dates: start: 20091128, end: 20091204

REACTIONS (5)
  - BLOOD UREA DECREASED [None]
  - DELUSION [None]
  - DRUG INEFFECTIVE [None]
  - HALLUCINATION [None]
  - PSYCHIATRIC SYMPTOM [None]
